FAERS Safety Report 17419386 (Version 5)
Quarter: 2022Q1

REPORT INFORMATION
  Report Type: Spontaneous
  Country: US (occurrence: US)
  Receive Date: 20200214
  Receipt Date: 20220117
  Transmission Date: 20220423
  Serious: Yes (Hospitalization, Other)
  Sender: FDA-Public Use
  Company Number: US-GILEAD-2020-0450660

PATIENT
  Age: 58 Year
  Sex: Male
  Weight: 58.957 kg

DRUGS (36)
  1. ATRIPLA [Suspect]
     Active Substance: EFAVIRENZ\EMTRICITABINE\TENOFOVIR DISOPROXIL FUMARATE
     Indication: HIV infection
     Dosage: 600 MG
     Route: 048
     Dates: start: 20130124, end: 20131130
  2. ATRIPLA [Suspect]
     Active Substance: EFAVIRENZ\EMTRICITABINE\TENOFOVIR DISOPROXIL FUMARATE
     Dosage: 200 MG
     Route: 048
  3. ATRIPLA [Suspect]
     Active Substance: EFAVIRENZ\EMTRICITABINE\TENOFOVIR DISOPROXIL FUMARATE
     Dosage: 300 MG, QD
     Route: 048
  4. ATRIPLA [Suspect]
     Active Substance: EFAVIRENZ\EMTRICITABINE\TENOFOVIR DISOPROXIL FUMARATE
     Dosage: UNK
     Route: 065
     Dates: start: 20130124, end: 20131127
  5. STRIBILD [Suspect]
     Active Substance: COBICISTAT\ELVITEGRAVIR\EMTRICITABINE\TENOFOVIR DISOPROXIL FUMARATE
     Indication: HIV infection
     Dosage: 150 MG, QD
     Route: 048
     Dates: start: 20131127, end: 20150630
  6. STRIBILD [Suspect]
     Active Substance: COBICISTAT\ELVITEGRAVIR\EMTRICITABINE\TENOFOVIR DISOPROXIL FUMARATE
     Dosage: 200 MG
     Route: 048
  7. STRIBILD [Suspect]
     Active Substance: COBICISTAT\ELVITEGRAVIR\EMTRICITABINE\TENOFOVIR DISOPROXIL FUMARATE
     Dosage: 300 MG
     Route: 048
  8. VIREAD [Suspect]
     Active Substance: TENOFOVIR DISOPROXIL FUMARATE
     Indication: HIV infection
     Route: 065
  9. AZELASTINE [Concomitant]
     Active Substance: AZELASTINE
  10. LISINOPRIL [Concomitant]
     Active Substance: LISINOPRIL
     Dosage: UNK
  11. ATORVASTATIN [Concomitant]
     Active Substance: ATORVASTATIN
  12. MIRTAZAPINE [Concomitant]
     Active Substance: MIRTAZAPINE
  13. POTASSIUM [Concomitant]
     Active Substance: POTASSIUM
  14. MECLIZINE HYDROCHLORIDE [Concomitant]
     Active Substance: MECLIZINE HYDROCHLORIDE
  15. DULOXETINE [Concomitant]
     Active Substance: DULOXETINE
  16. BUPROPION [Concomitant]
     Active Substance: BUPROPION
  17. TRIAMTERENE [Concomitant]
     Active Substance: TRIAMTERENE
  18. CLONAZEPAM [Concomitant]
     Active Substance: CLONAZEPAM
  19. ASTEPRO [Concomitant]
     Active Substance: AZELASTINE HYDROCHLORIDE
  20. DYAZIDE [Concomitant]
     Active Substance: HYDROCHLOROTHIAZIDE\TRIAMTERENE
  21. CEFIXIME [Concomitant]
     Active Substance: CEFIXIME
  22. KLOR-CON [Concomitant]
     Active Substance: POTASSIUM CHLORIDE
  23. ACETAMINOPHEN [Concomitant]
     Active Substance: ACETAMINOPHEN
  24. AMOXICILLIN [Concomitant]
     Active Substance: AMOXICILLIN
  25. ASPIRIN [Concomitant]
     Active Substance: ASPIRIN
  26. FLEET ENEMA [Concomitant]
     Active Substance: SODIUM PHOSPHATE, DIBASIC\SODIUM PHOSPHATE, MONOBASIC
  27. HEPARIN [Concomitant]
     Active Substance: HEPARIN SODIUM
  28. PENICILLIN [Concomitant]
     Active Substance: PENICILLIN
  29. PRAVASTATIN [Concomitant]
     Active Substance: PRAVASTATIN
  30. TETRACYCLINE [Concomitant]
     Active Substance: TETRACYCLINE
  31. EPIVIR [Concomitant]
     Active Substance: LAMIVUDINE
     Indication: HIV infection
  32. INVIRASE [Concomitant]
     Active Substance: SAQUINAVIR MESYLATE
     Indication: HIV infection
  33. ISENTRESS [Concomitant]
     Active Substance: RALTEGRAVIR POTASSIUM
     Indication: HIV infection
     Dosage: UNK
     Dates: start: 201508
  34. NORVIR [Concomitant]
     Active Substance: RITONAVIR
     Indication: HIV infection
     Dosage: UNK
     Dates: start: 201508
  35. PREZISTA [Concomitant]
     Active Substance: DARUNAVIR ETHANOLATE
     Indication: HIV infection
     Dosage: UNK
     Dates: start: 201508
  36. VIDEX [Concomitant]
     Active Substance: DIDANOSINE
     Indication: HIV infection

REACTIONS (8)
  - Chronic kidney disease [Not Recovered/Not Resolved]
  - Renal failure [Not Recovered/Not Resolved]
  - Economic problem [Not Recovered/Not Resolved]
  - Anhedonia [Unknown]
  - Emotional distress [Not Recovered/Not Resolved]
  - Anxiety [Unknown]
  - Pain [Not Recovered/Not Resolved]
  - Mobility decreased [Not Recovered/Not Resolved]

NARRATIVE: CASE EVENT DATE: 20150601
